FAERS Safety Report 10032891 (Version 3)
Quarter: 2014Q2

REPORT INFORMATION
  Report Type: Spontaneous
  Country: JP (occurrence: JP)
  Receive Date: 20140324
  Receipt Date: 20140407
  Transmission Date: 20141212
  Serious: Yes (Hospitalization, Other)
  Sender: FDA-Public Use
  Company Number: JP-B.I. PHARMACEUTICALS,INC./RIDGEFIELD-2013-BI-21624GD

PATIENT
  Age: 84 Year
  Sex: Female
  Weight: 44 kg

DRUGS (12)
  1. PRADAXA [Suspect]
     Indication: CEREBROVASCULAR ACCIDENT PROPHYLAXIS
     Dosage: 220 MG
     Route: 048
  2. MARZULENE-S [Concomitant]
     Route: 065
  3. JZOLOFT [Concomitant]
     Route: 065
  4. DIGOSIN [Concomitant]
     Route: 065
  5. ASPARA K [Concomitant]
     Route: 065
  6. DOGMATYL [Concomitant]
     Route: 065
  7. LIVALO [Concomitant]
     Route: 065
  8. DEPAS [Concomitant]
     Route: 065
  9. PURSENNID [Concomitant]
     Route: 065
  10. EPADEL [Concomitant]
     Route: 065
  11. WARFARIN POTASSIUM [Concomitant]
     Route: 065
  12. NEXIUM [Concomitant]
     Route: 065

REACTIONS (2)
  - Subcutaneous haematoma [Recovered/Resolved]
  - Contusion [Unknown]
